FAERS Safety Report 10152763 (Version 2)
Quarter: 2014Q2

REPORT INFORMATION
  Report Type: Spontaneous
  Country: BR (occurrence: BR)
  Receive Date: 20140505
  Receipt Date: 20140512
  Transmission Date: 20141212
  Serious: Yes (Disabling)
  Sender: FDA-Public Use
  Company Number: BR-PFIZER INC-2014120709

PATIENT
  Age: 50 Year
  Sex: Female

DRUGS (4)
  1. LIPITOR [Suspect]
     Indication: BLOOD CHOLESTEROL
     Dosage: UNSPECIFIED DOSE, 1X/DAY
     Route: 048
     Dates: start: 201401, end: 201402
  2. BUDESONIDE [Concomitant]
     Indication: NASAL CONGESTION
     Dosage: 1 SQUIRT IN EACH NOSTRIL, UNK
     Route: 045
     Dates: start: 201401, end: 201403
  3. KALOBA [Concomitant]
     Indication: SINUSITIS
     Dosage: 3 DROPS IN EACH NOSTRIL, DAILY
     Route: 045
     Dates: start: 201401, end: 201401
  4. DALSY [Concomitant]
     Indication: HEADACHE
     Dosage: AS NEEDED
     Route: 048
     Dates: start: 201401

REACTIONS (2)
  - Glaucoma [Unknown]
  - Pneumonia [Unknown]
